FAERS Safety Report 17722960 (Version 1)
Quarter: 2020Q2

REPORT INFORMATION
  Report Type: Report from Study
  Country: ES (occurrence: ES)
  Receive Date: 20200429
  Receipt Date: 20200429
  Transmission Date: 20200714
  Serious: Yes (Hospitalization)
  Sender: FDA-Public Use
  Company Number: ES-TEVA-2020-ES-1227586

PATIENT
  Age: 43 Year
  Sex: Female

DRUGS (6)
  1. DILTIAZEM HIDROCLORURO (3735CH) [Concomitant]
     Active Substance: DILTIAZEM HYDROCHLORIDE
     Indication: HYPERTENSION
     Dosage: 60 MG
     Route: 048
     Dates: start: 2017, end: 20170711
  2. ENVARSUS XR [Interacting]
     Active Substance: TACROLIMUS
     Indication: PROPHYLAXIS AGAINST TRANSPLANT REJECTION
     Dosage: 22 MG
     Route: 048
     Dates: start: 201612
  3. OMEPRAZOL (2141A) [Concomitant]
     Active Substance: OMEPRAZOLE
     Indication: PROPHYLAXIS
     Dosage: 20 MG
     Route: 048
     Dates: start: 201607
  4. CELLCEPT [Interacting]
     Active Substance: MYCOPHENOLATE MOFETIL\MYCOPHENOLATE MOFETIL HYDROCHLORIDE
     Indication: PROPHYLAXIS AGAINST TRANSPLANT REJECTION
     Dosage: 1 GRAM
     Route: 048
     Dates: start: 201612, end: 20170711
  5. PREDNISONA (886A) [Suspect]
     Active Substance: PREDNISONE
     Indication: PROPHYLAXIS AGAINST TRANSPLANT REJECTION
     Dosage: 5 MG
     Route: 048
     Dates: start: 201612, end: 201612
  6. CARDURAN NEO 8 MG COMPRIMIDOS DE LIBERACION MODIFICADA, 28 COMPRIMIDOS [Concomitant]
     Dosage: 8 MG
     Route: 048
     Dates: start: 2008, end: 20170711

REACTIONS (2)
  - Drug interaction [Unknown]
  - Cytomegalovirus infection [Recovered/Resolved]

NARRATIVE: CASE EVENT DATE: 201705
